FAERS Safety Report 7545291-3 (Version None)
Quarter: 2011Q2

REPORT INFORMATION
  Report Type: 
  Country: None (occurrence: None)
  Receive Date: 20110614
  Receipt Date: 20110603
  Transmission Date: 20111010
  Serious: Yes (Other)
  Sender: FDA-Public Use
  Company Number: SE-NOVOPROD-329299

PATIENT
  Age: 10 Year
  Sex: Female

DRUGS (8)
  1. CANODERM [Concomitant]
  2. FUCIDIN                            /00065701/ [Concomitant]
  3. MICROCID                           /00003801/ [Concomitant]
  4. NORDITROPIN [Suspect]
     Indication: GROWTH HORMONE DEFICIENCY
     Dosage: 0.5 MG, QD
     Route: 065
     Dates: start: 20080424, end: 20110504
  5. MOLLIPECT [Concomitant]
  6. ELOCON [Concomitant]
  7. CORTIMYK [Concomitant]
  8. MILDISON LIPID [Concomitant]

REACTIONS (1)
  - NEOPLASM [None]
